FAERS Safety Report 9989203 (Version 2)
Quarter: 2014Q2

REPORT INFORMATION
  Report Type: Spontaneous
  Country: IN (occurrence: IN)
  Receive Date: 20140310
  Receipt Date: 20140513
  Transmission Date: 20141212
  Serious: Yes (Hospitalization)
  Sender: FDA-Public Use
  Company Number: IN-SA-2014SA028740

PATIENT
  Age: 63 Year
  Sex: Male

DRUGS (2)
  1. STREPTOKINASE [Suspect]
     Indication: ACUTE MYOCARDIAL INFARCTION
     Route: 042
  2. ENOXAPARIN SODIUM [Suspect]
     Indication: PRODUCT USED FOR UNKNOWN INDICATION
     Dosage: ADMINISTERED 6 HOURS AFTER THROMBOLYSIS WITH STREPTOKINASE
     Route: 065

REACTIONS (8)
  - Spinal epidural haematoma [Unknown]
  - Spinal cord compression [Unknown]
  - Muscular weakness [Unknown]
  - Urinary retention [Unknown]
  - Bladder dilatation [Unknown]
  - Paraplegia [Unknown]
  - Areflexia [Unknown]
  - Sensory loss [Unknown]
